FAERS Safety Report 17849054 (Version 1)
Quarter: 2020Q2

REPORT INFORMATION
  Report Type: Spontaneous
  Country: US (occurrence: US)
  Receive Date: 20200602
  Receipt Date: 20200602
  Transmission Date: 20200714
  Serious: Yes (Death)
  Sender: FDA-Public Use
  Company Number: US-SA-2020SA139166

PATIENT

DRUGS (1)
  1. CABLIVI [Suspect]
     Active Substance: CAPLACIZUMAB-YHDP
     Route: 065

REACTIONS (3)
  - Death [Fatal]
  - Malaise [Unknown]
  - Unevaluable event [Unknown]
